FAERS Safety Report 8583434-3 (Version None)
Quarter: 2012Q3

REPORT INFORMATION
  Report Type: 
  Country: None (occurrence: None)
  Receive Date: 20120809
  Receipt Date: 20120731
  Transmission Date: 20120928
  Serious: Yes (Death)
  Sender: FDA-Public Use
  Company Number: GB-BAXTER-2012BAX011770

PATIENT
  Sex: Male
  Weight: 79.9 kg

DRUGS (2)
  1. EXTRANEAL [Suspect]
     Route: 033
     Dates: start: 20100510
  2. DIANEAL [Suspect]
     Route: 033
     Dates: start: 20100510

REACTIONS (1)
  - CARDIAC ARREST [None]
